FAERS Safety Report 12602748 (Version 2)
Quarter: 2016Q3

REPORT INFORMATION
  Report Type: Spontaneous
  Country: FR (occurrence: FR)
  Receive Date: 20160728
  Receipt Date: 20160930
  Transmission Date: 20161109
  Serious: Yes (Death, Hospitalization)
  Sender: FDA-Public Use
  Company Number: FR-PFIZER INC-2016349450

PATIENT
  Age: 61 Year
  Sex: Female

DRUGS (3)
  1. GABAPENTINE [Concomitant]
     Active Substance: GABAPENTIN
     Dosage: 300 MG, 3X/DAY
  2. NOCTAMIDE [Concomitant]
     Active Substance: LORMETAZEPAM
     Dosage: 2 MG, UNK
  3. FARMORUBICINE [Suspect]
     Active Substance: EPIRUBICIN HYDROCHLORIDE
     Indication: BREAST CANCER METASTATIC
     Dosage: 1 DF, WEEKLY (3 WEEKS OVER 4 WEEKS) 6 CYCLES
     Route: 041
     Dates: start: 20150902, end: 20160331

REACTIONS (1)
  - Portal vein thrombosis [Fatal]

NARRATIVE: CASE EVENT DATE: 20160316
